FAERS Safety Report 9857431 (Version 1)
Quarter: 2014Q1

REPORT INFORMATION
  Report Type: Spontaneous
  Country: BR (occurrence: BR)
  Receive Date: 20140131
  Receipt Date: 20140131
  Transmission Date: 20141002
  Serious: Yes (Hospitalization, Other)
  Sender: FDA-Public Use
  Company Number: BR-ASTRAZENECA-2014SE06186

PATIENT
  Age: 69 Year
  Sex: Male
  Weight: 90 kg

DRUGS (2)
  1. CRESTOR [Suspect]
     Indication: ARTERIOSCLEROSIS
     Dosage: DAILY
     Route: 048
     Dates: start: 2010
  2. BRILINTA [Suspect]
     Indication: CORONARY ARTERY OCCLUSION
     Dosage: TWO TIMES A DAY
     Route: 048
     Dates: start: 20140117

REACTIONS (2)
  - Coronary artery occlusion [Recovered/Resolved]
  - Device occlusion [Recovered/Resolved]
